FAERS Safety Report 5937387-4 (Version None)
Quarter: 2008Q4

REPORT INFORMATION
  Report Type: 
  Country: None (occurrence: None)
  Receive Date: 20081021
  Receipt Date: 20070914
  Transmission Date: 20090506
  Serious: Yes (Hospitalization, Other)
  Sender: FDA-Public Use
  Company Number: HQWYE326014FEB05

PATIENT
  Age: 55 Year

DRUGS (3)
  1. PREMARIN [Suspect]
     Dosage: UNSPECIFIED, ORAL
     Route: 048
     Dates: start: 19970101
  2. MEDROXYPROGESTERONE ACETATE [Suspect]
  3. PROVERA [Suspect]

REACTIONS (1)
  - BREAST CANCER [None]
